FAERS Safety Report 20245693 (Version 1)
Quarter: 2021Q4

REPORT INFORMATION
  Report Type: Spontaneous
  Country: US (occurrence: US)
  Receive Date: 20211229
  Receipt Date: 20211229
  Transmission Date: 20220303
  Serious: No
  Sender: FDA-Public Use
  Company Number: US-ELI_LILLY_AND_COMPANY-US202112012094

PATIENT
  Sex: Female

DRUGS (6)
  1. EMGALITY [Suspect]
     Active Substance: GALCANEZUMAB-GNLM
     Indication: Migraine
     Dosage: 240 MG, SINGLE (LOADING DOSE)
     Route: 058
  2. EMGALITY [Suspect]
     Active Substance: GALCANEZUMAB-GNLM
     Indication: Trigeminal neuralgia
     Dosage: 120 MG, UNKNOWN
     Route: 058
  3. BACLOFEN [Concomitant]
     Active Substance: BACLOFEN
     Indication: Headache
  4. TEGRETOL [Concomitant]
     Active Substance: CARBAMAZEPINE
     Indication: Headache
  5. PERCOCET [Concomitant]
     Active Substance: ACETAMINOPHEN\OXYCODONE HYDROCHLORIDE
     Indication: Headache
  6. XANAX [Concomitant]
     Active Substance: ALPRAZOLAM
     Indication: Headache

REACTIONS (2)
  - Injection site pain [Recovered/Resolved]
  - Migraine [Unknown]
